FAERS Safety Report 17424433 (Version 1)
Quarter: 2020Q1

REPORT INFORMATION
  Report Type: Spontaneous
  Country: DE (occurrence: DE)
  Receive Date: 20200217
  Receipt Date: 20200217
  Transmission Date: 20200409
  Serious: Yes (Other)
  Sender: FDA-Public Use
  Company Number: NVSC2020DE040176

PATIENT
  Sex: Female

DRUGS (4)
  1. LAMOTRIGINE. [Concomitant]
     Active Substance: LAMOTRIGINE
     Indication: EPILEPSY
     Dosage: UNK (MAXIMAUM SINGLE DOSE: 200 MG.TOTAL DAILY DOSE : 350 MG)
     Route: 065
     Dates: start: 20031231, end: 20050622
  2. VALPROATE SODIUM. [Suspect]
     Active Substance: VALPROATE SODIUM
     Indication: PRODUCT USED FOR UNKNOWN INDICATION
     Dosage: 1500 MG (MAXIMUM SINGLE DOSE; 1000 MG)
     Route: 065
     Dates: start: 2005
  3. LEVETIRACETAM. [Suspect]
     Active Substance: LEVETIRACETAM
     Indication: EPILEPSY
     Dosage: 500 MG, Q12H (2X/DAY (BID))
     Route: 065
     Dates: start: 20050525
  4. CLOBAZAM. [Suspect]
     Active Substance: CLOBAZAM
     Indication: EPILEPSY
     Dosage: 10 MG, QD
     Route: 065
     Dates: start: 20050525

REACTIONS (3)
  - Maternal exposure during pregnancy [Unknown]
  - Pregnancy on contraceptive [Unknown]
  - Pregnancy with contraceptive device [Unknown]

NARRATIVE: CASE EVENT DATE: 20050528
